FAERS Safety Report 10958310 (Version 1)
Quarter: 2015Q1

REPORT INFORMATION
  Report Type: Report from Study
  Country: US (occurrence: US)
  Receive Date: 20150326
  Receipt Date: 20150326
  Transmission Date: 20150721
  Serious: Yes (Other)
  Sender: FDA-Public Use
  Company Number: PHEH2015US005440

PATIENT
  Sex: Female

DRUGS (2)
  1. TOBI PODHALER [Suspect]
     Active Substance: TOBRAMYCIN
     Indication: BRONCHIECTASIS
     Dosage: 4 DF, BID (4 CAPSULES TWICE DAILY)
     Route: 055
  2. TOBI PODHALER [Suspect]
     Active Substance: TOBRAMYCIN
     Dosage: 28 MG, BID
     Route: 055

REACTIONS (26)
  - Pulmonary hypertension [Unknown]
  - Type 2 diabetes mellitus [Unknown]
  - Sciatica [Unknown]
  - Blood cholesterol increased [Unknown]
  - Coronary artery disease [Unknown]
  - Bronchiectasis [Unknown]
  - Oedema peripheral [Unknown]
  - Diabetic neuropathy [Unknown]
  - Aortic valve incompetence [Unknown]
  - Anxiety [Unknown]
  - Osteoarthritis [Unknown]
  - Atrial fibrillation [Unknown]
  - Anaemia macrocytic [Unknown]
  - Gastrooesophageal reflux disease [Unknown]
  - Tricuspid valve incompetence [Unknown]
  - Chronic kidney disease [Unknown]
  - Myocardial infarction [Unknown]
  - Microalbuminuria [Unknown]
  - Mitral valve incompetence [Unknown]
  - Product use issue [Unknown]
  - Pulmonary fibrosis [Unknown]
  - Hypertension [Unknown]
  - Lung neoplasm malignant [Unknown]
  - Cervical spinal stenosis [Unknown]
  - Spinal column stenosis [Unknown]
  - Cough [Unknown]
